FAERS Safety Report 17438427 (Version 4)
Quarter: 2020Q2

REPORT INFORMATION
  Report Type: Spontaneous
  Country: CA (occurrence: CA)
  Receive Date: 20200220
  Receipt Date: 20200528
  Transmission Date: 20200713
  Serious: Yes (Other)
  Sender: FDA-Public Use
  Company Number: CA-ORION CORPORATION ORION PHARMA-TREX2020-0913

PATIENT
  Age: 41 Year
  Sex: Female

DRUGS (8)
  1. CURCUMIN [Concomitant]
     Active Substance: CURCUMIN
     Route: 065
  2. METHOTREXATE (TRADE NAME UNKNOWN) [Suspect]
     Active Substance: METHOTREXATE
     Indication: PRODUCT USED FOR UNKNOWN INDICATION
     Route: 065
  3. VITAMIN C [Concomitant]
     Active Substance: ASCORBIC ACID
     Route: 065
  4. VITAMIN B12 [Concomitant]
     Active Substance: CYANOCOBALAMIN
     Route: 065
  5. VITAMIN B [Concomitant]
     Active Substance: VITAMIN B
     Route: 065
  6. BLACK CUMIN OIL [Concomitant]
     Route: 065
  7. APPLE CIDER VINEGAR [Concomitant]
     Active Substance: APPLE CIDER VINEGAR
     Route: 065
  8. GINGER ROOT [Concomitant]
     Active Substance: GINGER
     Route: 065

REACTIONS (5)
  - Intestinal haemorrhage [Unknown]
  - Feeling abnormal [Unknown]
  - Diverticulitis [Recovering/Resolving]
  - Infection [Unknown]
  - Pain [Unknown]
